FAERS Safety Report 6170088-9 (Version None)
Quarter: 2009Q2

REPORT INFORMATION
  Report Type: 
  Country: None (occurrence: None)
  Receive Date: 20090428
  Receipt Date: 20090420
  Transmission Date: 20091009
  Serious: Yes (Other)
  Sender: FDA-Public Use
  Company Number: B0459727A

PATIENT
  Age: 68 Year
  Sex: Male
  Weight: 78 kg

DRUGS (9)
  1. DIGOXIN [Suspect]
     Dosage: .125MG PER DAY
     Route: 065
  2. FUROSEMIDE [Suspect]
     Dosage: 80MG TWICE PER DAY
     Route: 065
  3. ASPIRIN [Suspect]
     Dosage: 75MG PER DAY
     Route: 065
  4. ACIPIMOX [Suspect]
     Dosage: 250MG TWICE PER DAY
     Route: 065
  5. AMIODARONE HCL [Suspect]
     Dosage: 200MG PER DAY
     Route: 065
  6. BISOPROLOL FUMARATE [Suspect]
     Dosage: 7.5MG SINGLE DOSE
     Route: 065
  7. EZETIMIBE [Suspect]
     Dosage: 10MG PER DAY
     Route: 065
  8. LANSOPRAZOLE [Suspect]
     Dosage: 30MG PER DAY
     Route: 065
  9. PERINDOPRIL [Suspect]
     Dosage: 2MG PER DAY
     Route: 065

REACTIONS (13)
  - ATRIAL FIBRILLATION [None]
  - CARDIAC MURMUR [None]
  - DISSOCIATION [None]
  - DIZZINESS [None]
  - DYSPNOEA [None]
  - DYSPNOEA EXERTIONAL [None]
  - FATIGUE [None]
  - FEELING ABNORMAL [None]
  - LEFT VENTRICULAR DYSFUNCTION [None]
  - OEDEMA [None]
  - PARAESTHESIA [None]
  - VENOUS PRESSURE JUGULAR INCREASED [None]
  - VENTRICULAR TACHYCARDIA [None]
